FAERS Safety Report 4456016-2 (Version None)
Quarter: 2004Q3

REPORT INFORMATION
  Report Type: 
  Country: None (occurrence: None)
  Receive Date: 20040922
  Receipt Date: 20040217
  Transmission Date: 20050211
  Serious: Yes (Other)
  Sender: FDA-Public Use
  Company Number: PHBS2004JP02312

PATIENT
  Age: 59 Year
  Sex: Male
  Weight: 51 kg

DRUGS (7)
  1. NEORAL [Suspect]
     Indication: RENAL TRANSPLANT
     Dosage: 450 MG/D
     Route: 048
     Dates: start: 20030927
  2. SIMULECT [Suspect]
     Indication: RENAL TRANSPLANT
     Dosage: 20 MG, ONCE/SINGLE
     Dates: start: 20030930, end: 20030930
  3. SIMULECT [Suspect]
     Dosage: 20 MG, ONCE/SINGLE
     Dates: start: 20031004, end: 20031004
  4. CELLCEPT [Suspect]
     Indication: RENAL TRANSPLANT
     Dosage: 2 G/D
     Route: 048
     Dates: start: 20030928
  5. SANDIMMUNE [Suspect]
     Indication: RENAL TRANSPLANT
     Dosage: 150 MG/D
     Route: 042
     Dates: start: 20030930, end: 20031001
  6. SOLU-MEDROL [Concomitant]
     Indication: RENAL TRANSPLANT
     Dosage: 500 MG/D
     Route: 065
     Dates: start: 20030930, end: 20030930
  7. MEDROL [Concomitant]
     Indication: RENAL TRANSPLANT
     Dosage: 52 MG/D
     Route: 065
     Dates: start: 20031002

REACTIONS (2)
  - BLOOD AMYLASE INCREASED [None]
  - CYTOMEGALOVIRUS ANTIGEN POSITIVE [None]
